FAERS Safety Report 5836987-X (Version None)
Quarter: 2008Q3

REPORT INFORMATION
  Report Type: 
  Country: None (occurrence: None)
  Receive Date: 20080806
  Receipt Date: 20080514
  Transmission Date: 20090109
  Serious: Yes (Life-Threatening, Disabling)
  Sender: FDA-Public Use
  Company Number: WAES 0805USA03582

PATIENT
  Sex: Male

DRUGS (1)
  1. JANUMET [Suspect]
     Indication: TYPE 2 DIABETES MELLITUS
     Dosage: 500MG/50 MG/BID/PO
     Route: 048
     Dates: start: 20080301

REACTIONS (1)
  - HYPOGLYCAEMIA [None]
